FAERS Safety Report 13739144 (Version 1)
Quarter: 2017Q3

REPORT INFORMATION
  Report Type: Spontaneous
  Country: US (occurrence: US)
  Receive Date: 20170710
  Receipt Date: 20170710
  Transmission Date: 20171127
  Serious: No
  Sender: FDA-Public Use
  Company Number: US-SAOL THERAPEUTICS-2017SAO01001

PATIENT
  Age: 65 Year
  Sex: Female

DRUGS (4)
  1. VALIUM [Suspect]
     Active Substance: DIAZEPAM
     Dosage: 195 MG, \DAY
     Route: 037
  2. VALIUM [Suspect]
     Active Substance: DIAZEPAM
     Dosage: 150 MG, \DAY
  3. LIORESAL [Suspect]
     Active Substance: BACLOFEN
     Dosage: 590 ?G, \DAY
     Route: 037
  4. LIORESAL [Suspect]
     Active Substance: BACLOFEN
     Dosage: 150 ?G, \DAY (DECREASED POST OP)
     Route: 037

REACTIONS (2)
  - Musculoskeletal stiffness [Unknown]
  - Device occlusion [Unknown]

NARRATIVE: CASE EVENT DATE: 20170602
